FAERS Safety Report 9850134 (Version 2)
Quarter: 2014Q1

REPORT INFORMATION
  Report Type: Spontaneous
  Country: US (occurrence: US)
  Receive Date: 20140128
  Receipt Date: 20140214
  Transmission Date: 20141002
  Serious: Yes (Other)
  Sender: FDA-Public Use
  Company Number: US-PFIZER INC-2014022601

PATIENT
  Age: 57 Year
  Sex: Female

DRUGS (1)
  1. REVATIO [Suspect]
     Indication: PULMONARY HYPERTENSION
     Dosage: 100 MG, 3X/DAY (20MGX5 TABLETS THREE TIMES DAILY)
     Dates: start: 20130403

REACTIONS (1)
  - Arthropathy [Not Recovered/Not Resolved]
